FAERS Safety Report 8095003-2 (Version None)
Quarter: 2012Q1

REPORT INFORMATION
  Report Type: 
  Country: None (occurrence: None)
  Receive Date: 20120131
  Receipt Date: 20120131
  Transmission Date: 20120608
  Serious: Yes (Hospitalization)
  Sender: FDA-Public Use
  Company Number: None

PATIENT
  Age: 71 Year
  Sex: Male

DRUGS (5)
  1. ISOVUE-300 [Suspect]
     Indication: IMAGING PROCEDURE
     Dosage: 100ML
     Route: 042
  2. LISINOPRIL [Concomitant]
  3. TOPROL-XL [Concomitant]
  4. FLAGYL [Concomitant]
  5. CIPROFLOXACIN [Concomitant]

REACTIONS (1)
  - RENAL FAILURE ACUTE [None]
